FAERS Safety Report 26099526 (Version 1)
Quarter: 2025Q4

REPORT INFORMATION
  Report Type: Spontaneous
  Country: US (occurrence: None)
  Receive Date: 20251128
  Receipt Date: 20251128
  Transmission Date: 20260117
  Serious: Yes (Hospitalization, Other)
  Sender: APOTEX
  Company Number: US-APOTEX-2025AP033051

PATIENT
  Age: 63 Year
  Sex: Female

DRUGS (1)
  1. ACETAMINOPHEN [Suspect]
     Active Substance: ACETAMINOPHEN
     Indication: Product used for unknown indication
     Dosage: 7.5 GRAM, QD
     Route: 065

REACTIONS (9)
  - Hepatotoxicity [Unknown]
  - Encephalopathy [Unknown]
  - Gastrointestinal haemorrhage [Unknown]
  - Toxicity to various agents [Unknown]
  - Acidosis [Unknown]
  - Coagulopathy [Unknown]
  - Hyperammonaemia [Unknown]
  - Mental status changes [Unknown]
  - Condition aggravated [Unknown]
